FAERS Safety Report 15182790 (Version 2)
Quarter: 2018Q3

REPORT INFORMATION
  Report Type: Spontaneous
  Country: DE (occurrence: DE)
  Receive Date: 20180723
  Receipt Date: 20180810
  Transmission Date: 20181010
  Serious: Yes (Other)
  Sender: FDA-Public Use
  Company Number: DE-JNJFOC-20180723585

PATIENT
  Age: 69 Year
  Sex: Male
  Weight: 100 kg

DRUGS (2)
  1. TOPIRAMATE. [Suspect]
     Active Substance: TOPIRAMATE
     Indication: PRODUCT USED FOR UNKNOWN INDICATION
     Route: 048
     Dates: start: 2008
  2. MYLEPSINUM [Suspect]
     Active Substance: PRIMIDONE
     Indication: EPILEPSY
     Route: 048
     Dates: start: 1961

REACTIONS (6)
  - Skin exfoliation [Recovered/Resolved with Sequelae]
  - Arthralgia [Not Recovered/Not Resolved]
  - Dry skin [Not Recovered/Not Resolved]
  - Acarodermatitis [Unknown]
  - Dermatitis exfoliative [Unknown]
  - Pruritus [Unknown]

NARRATIVE: CASE EVENT DATE: 2017
